FAERS Safety Report 6198659-4 (Version None)
Quarter: 2009Q2

REPORT INFORMATION
  Report Type: 
  Country: None (occurrence: None)
  Receive Date: 20090518
  Receipt Date: 20090518
  Transmission Date: 20091009
  Serious: Yes (Hospitalization)
  Sender: FDA-Public Use
  Company Number: None

PATIENT
  Age: 48 Year
  Sex: Female
  Weight: 55 kg

DRUGS (14)
  1. GEMCITABINE [Suspect]
     Indication: BLADDER CANCER
     Dosage: 1000 MG/M**2 CYC
     Dates: start: 20080417, end: 20080417
  2. CISPLATIN [Suspect]
     Indication: BLADDER CANCER
     Dosage: 70 MG/M**2
     Dates: start: 20080417, end: 20080417
  3. NAPROXEN [Concomitant]
  4. PHENERGAN [Concomitant]
  5. HYDROCODONE BITARTRATE [Concomitant]
  6. MORPHINE SULFATE [Concomitant]
  7. ACETAMINOPHEN [Concomitant]
  8. ZOMETA [Concomitant]
  9. ALOXI [Concomitant]
  10. MANNITOL [Concomitant]
  11. DECADRON [Concomitant]
  12. DIPHENHYDRAMINE HCL [Concomitant]
  13. ZANTAC [Concomitant]
  14. MAGNESIUM SULFATE [Concomitant]

REACTIONS (19)
  - ASTHENIA [None]
  - BLOOD CALCIUM DECREASED [None]
  - BLOOD MAGNESIUM DECREASED [None]
  - BLOOD PHOSPHORUS DECREASED [None]
  - BLOOD POTASSIUM DECREASED [None]
  - BLOOD PRESSURE DECREASED [None]
  - BLOOD SODIUM DECREASED [None]
  - BLOOD UREA INCREASED [None]
  - DEHYDRATION [None]
  - ELECTROLYTE IMBALANCE [None]
  - FATIGUE [None]
  - HAEMATOCRIT DECREASED [None]
  - HAEMOGLOBIN DECREASED [None]
  - MENTAL STATUS CHANGES [None]
  - METABOLIC ENCEPHALOPATHY [None]
  - PLATELET COUNT DECREASED [None]
  - PLATELET COUNT INCREASED [None]
  - WHITE BLOOD CELL COUNT DECREASED [None]
  - WHITE BLOOD CELL COUNT INCREASED [None]
